FAERS Safety Report 9890407 (Version 1)
Quarter: 2014Q1

REPORT INFORMATION
  Report Type: Spontaneous
  Country: MY (occurrence: MY)
  Receive Date: 20140212
  Receipt Date: 20140212
  Transmission Date: 20141002
  Serious: Yes (Death)
  Sender: FDA-Public Use
  Company Number: MY-BAYER-2014-020567

PATIENT
  Age: 42 Year
  Sex: Male

DRUGS (2)
  1. CIPROBAY [Suspect]
     Indication: WHITE BLOOD CELL COUNT INCREASED
     Dosage: 200 MG, BID
     Route: 042
  2. CIPROBAY [Suspect]
     Indication: DIARRHOEA

REACTIONS (1)
  - Death [Fatal]
